FAERS Safety Report 5491611-3 (Version None)
Quarter: 2007Q4

REPORT INFORMATION
  Report Type: 
  Country: None (occurrence: None)
  Receive Date: 20071019
  Receipt Date: 20071019
  Transmission Date: 20080405
  Serious: Yes (Other)
  Sender: FDA-Public Use
  Company Number: None

PATIENT
  Age: 19 Year
  Sex: Male

DRUGS (2)
  1. BACTRIM [Suspect]
     Dates: start: 20060717, end: 20060731
  2. PREVACID [Concomitant]

REACTIONS (11)
  - DEHYDRATION [None]
  - HEADACHE [None]
  - HEART RATE INCREASED [None]
  - HEPATIC ENZYME ABNORMAL [None]
  - LIVER INJURY [None]
  - ORTHOSTATIC HYPOTENSION [None]
  - PHARYNGOLARYNGEAL PAIN [None]
  - PHOTOPHOBIA [None]
  - PYREXIA [None]
  - RASH GENERALISED [None]
  - RASH MACULAR [None]
